FAERS Safety Report 5747576-X (Version None)
Quarter: 2008Q2

REPORT INFORMATION
  Report Type: 
  Country: None (occurrence: None)
  Receive Date: 20080523
  Receipt Date: 20080508
  Transmission Date: 20081010
  Serious: Yes (Other)
  Sender: FDA-Public Use
  Company Number: US-AVENTIS-200716053EU

PATIENT
  Age: 74 Year
  Sex: Male

DRUGS (11)
  1. LOVENOX [Suspect]
     Route: 058
     Dates: start: 20070612, end: 20070614
  2. LOVENOX [Suspect]
     Route: 058
     Dates: start: 20070619, end: 20070621
  3. LOVENOX [Suspect]
     Route: 058
     Dates: start: 20070615, end: 20070618
  4. ADVAIR DISKUS 100/50 [Concomitant]
     Indication: ASTHMA
     Dosage: DOSE: 2 PUFFS
     Route: 055
  5. LOTREL                             /01289101/ [Concomitant]
     Indication: HYPERTENSION
     Route: 048
  6. HYDROCHLOROTHIAZIDE [Concomitant]
     Indication: HYPERTENSION
     Route: 048
  7. GLYBERIDE [Concomitant]
     Route: 048
  8. SIMVASTATIN [Concomitant]
     Route: 048
  9. FLOMAX [Concomitant]
     Route: 048
     Dates: start: 20060101
  10. PLAVIX [Concomitant]
     Indication: CORONARY ARTERY DISEASE
     Route: 048
     Dates: end: 20070604
  11. ASPIRIN [Concomitant]
     Indication: CORONARY ARTERY DISEASE
     Route: 048
     Dates: end: 20070604

REACTIONS (3)
  - ALANINE AMINOTRANSFERASE INCREASED [None]
  - BILIRUBIN CONJUGATED INCREASED [None]
  - HEPATIC ENZYME INCREASED [None]
